FAERS Safety Report 4940703-3 (Version None)
Quarter: 2006Q1

REPORT INFORMATION
  Report Type: 
  Country: None (occurrence: None)
  Receive Date: 20060313
  Receipt Date: 20050816
  Transmission Date: 20060701
  Serious: Yes (Death)
  Sender: FDA-Public Use
  Company Number: DE-BOEHRINGER INGELHEIM PHARMACEUTICALS, INC.-2005-DE-03197DE

PATIENT
  Sex: Male
  Weight: 104 kg

DRUGS (5)
  1. MICARDIS [Suspect]
     Indication: HYPERTENSION
     Route: 048
     Dates: start: 20050321, end: 20050801
  2. BELOC [Concomitant]
     Indication: HYPERTENSION
     Route: 048
     Dates: end: 20050801
  3. CEDUR RETARD [Concomitant]
     Indication: HYPERCHOLESTEROLAEMIA
     Route: 048
     Dates: end: 20050801
  4. ZYLORIC [Concomitant]
     Indication: BLOOD URIC ACID INCREASED
     Route: 048
  5. FUMADERM [Concomitant]
     Route: 048

REACTIONS (2)
  - ARRHYTHMIA [None]
  - DEATH [None]
